FAERS Safety Report 12643261 (Version 3)
Quarter: 2016Q3

REPORT INFORMATION
  Report Type: Spontaneous
  Country: AT (occurrence: AT)
  Receive Date: 20160811
  Receipt Date: 20160922
  Transmission Date: 20161109
  Serious: Yes (Death, Hospitalization, Other)
  Sender: FDA-Public Use
  Company Number: AT-BAXTER-2016BAX041705

PATIENT
  Sex: Female
  Weight: 45 kg

DRUGS (8)
  1. EXTRANEAL [Suspect]
     Active Substance: CALCIUM CHLORIDE\ICODEXTRIN\MAGNESIUM CHLORIDE\SODIUM CHLORIDE\SODIUM LACTATE
     Indication: PERITONEAL DIALYSIS
     Dosage: 1 BAG
     Route: 033
     Dates: end: 20160805
  2. T-ASS [Concomitant]
     Indication: CORONARY ARTERY DISEASE
     Route: 065
     Dates: end: 20160805
  3. LEXOTANIL [Concomitant]
     Active Substance: BROMAZEPAM
     Indication: DEPRESSION
     Dosage: 1/2
     Route: 065
  4. PHYSIONEAL 40 GLUCOSE 1,36% W/V/13,6 MG/ML CLEAR-FLEX - PERITONEALDIAL [Suspect]
     Active Substance: CALCIUM CHLORIDE\DEXTROSE MONOHYDRATE\MAGNESIUM CHLORIDE\SODIUM BICARBONATE\SODIUM CHLORIDE\SODIUM LACTATE
     Indication: PERITONEAL DIALYSIS
     Dosage: 2 BAGS
     Route: 033
     Dates: end: 20160805
  5. PHYSIONEAL 40 GLUCOSE 2,27% W/V/22,7 MG/ML CLEAR-FLEX - PERITONEALDIAL [Suspect]
     Active Substance: CALCIUM CHLORIDE\DEXTROSE MONOHYDRATE\MAGNESIUM CHLORIDE\SODIUM BICARBONATE\SODIUM CHLORIDE\SODIUM LACTATE
     Indication: PERITONEAL DIALYSIS
     Route: 033
     Dates: end: 20160805
  6. CYMBALTA [Concomitant]
     Active Substance: DULOXETINE HYDROCHLORIDE
     Indication: DEPRESSION
     Dosage: 1/2
     Route: 065
  7. HYDAL [Concomitant]
     Active Substance: HYDROMORPHONE HYDROCHLORIDE
     Indication: MUSCULOSKELETAL PAIN
     Route: 065
  8. NOVALGIN [Concomitant]
     Active Substance: METAMIZOLE SODIUM
     Indication: MUSCULOSKELETAL PAIN
     Dosage: 3X20
     Route: 065

REACTIONS (9)
  - Cerebral arteriosclerosis [Unknown]
  - Skin disorder [Unknown]
  - Cardiovascular insufficiency [Fatal]
  - Fall [Unknown]
  - Cerebral haematoma [Unknown]
  - Laceration [Unknown]
  - Cerebral atrophy [Unknown]
  - Cerebral microangiopathy [Unknown]
  - Enterococcal sepsis [Fatal]
